FAERS Safety Report 16468250 (Version 1)
Quarter: 2019Q2

REPORT INFORMATION
  Report Type: Spontaneous
  Country: FR (occurrence: FR)
  Receive Date: 20190624
  Receipt Date: 20190624
  Transmission Date: 20190711
  Serious: Yes (Life-Threatening)
  Sender: FDA-Public Use
  Company Number: FR-ACCORD-134409

PATIENT
  Age: 60 Year
  Sex: Female
  Weight: 69 kg

DRUGS (6)
  1. KETAMINE [Concomitant]
     Active Substance: KETAMINE
     Indication: GENERAL ANAESTHESIA
     Route: 042
     Dates: start: 20181107
  2. CEFAZOLIN [Suspect]
     Active Substance: CEFAZOLIN
     Indication: ANTIBIOTIC PROPHYLAXIS
     Route: 042
     Dates: start: 20181107
  3. SIMVASTATIN. [Concomitant]
     Active Substance: SIMVASTATIN
     Indication: DYSLIPIDAEMIA
     Route: 048
  4. SUFENTANIL [Concomitant]
     Active Substance: SUFENTANIL
     Indication: GENERAL ANAESTHESIA
     Route: 042
     Dates: start: 20181107
  5. PROPOFOL. [Concomitant]
     Active Substance: PROPOFOL
     Indication: GENERAL ANAESTHESIA
     Route: 042
     Dates: start: 20181107
  6. CISATRACURIUM/CISATRACURIUM BESILATE [Suspect]
     Active Substance: CISATRACURIUM BESYLATE
     Indication: GENERAL ANAESTHESIA
     Route: 042
     Dates: start: 20181107

REACTIONS (1)
  - Anaphylactic shock [Recovered/Resolved]

NARRATIVE: CASE EVENT DATE: 20181107
